FAERS Safety Report 6830672-3 (Version None)
Quarter: 2010Q3

REPORT INFORMATION
  Report Type: 
  Country: None (occurrence: None)
  Receive Date: 20100709
  Receipt Date: 20100709
  Transmission Date: 20110219
  Serious: Yes (Other)
  Sender: FDA-Public Use
  Company Number: None

PATIENT
  Age: 70 Year
  Sex: Female
  Weight: 50.8029 kg

DRUGS (1)
  1. BONIVA [Suspect]
     Indication: OSTEOPOROSIS
     Dosage: 150MG MONTHLY INGESTION
     Route: 048
     Dates: start: 20100531

REACTIONS (8)
  - ABDOMINAL DISCOMFORT [None]
  - ARTHRALGIA [None]
  - BLINDNESS [None]
  - DIZZINESS [None]
  - DYSPEPSIA [None]
  - PAIN [None]
  - PAIN IN JAW [None]
  - SWELLING FACE [None]
